FAERS Safety Report 12876673 (Version 1)
Quarter: 2016Q4

REPORT INFORMATION
  Report Type: Spontaneous
  Country: FR (occurrence: FR)
  Receive Date: 20161024
  Receipt Date: 20161024
  Transmission Date: 20170207
  Serious: Yes (Other)
  Sender: FDA-Public Use
  Company Number: FR-STRIDES ARCOLAB LIMITED-2016SP016198

PATIENT

DRUGS (6)
  1. DABRAFENIB [Interacting]
     Active Substance: DABRAFENIB
     Dosage: UNK
  2. EVEROLIMUS [Interacting]
     Active Substance: EVEROLIMUS
     Dosage: INCREASED DOSE
  3. EVEROLIMUS [Interacting]
     Active Substance: EVEROLIMUS
     Indication: IMMUNOSUPPRESSION
     Dosage: 1.5 MG PER DAY
  4. DABRAFENIB [Interacting]
     Active Substance: DABRAFENIB
     Indication: METASTATIC MALIGNANT MELANOMA
     Dosage: 300 MG PER DAY
  5. TACROLIMUS. [Suspect]
     Active Substance: TACROLIMUS
     Indication: IMMUNOSUPPRESSION
     Dosage: 5 MG/DAY
  6. TACROLIMUS. [Interacting]
     Active Substance: TACROLIMUS
     Dosage: INCREASED DOSE

REACTIONS (2)
  - Drug level decreased [Unknown]
  - Drug interaction [Unknown]
